FAERS Safety Report 4751690-5 (Version None)
Quarter: 2005Q3

REPORT INFORMATION
  Report Type: 
  Country: None (occurrence: None)
  Receive Date: 20050824
  Receipt Date: 20050707
  Transmission Date: 20060218
  Serious: Yes (Disabling)
  Sender: FDA-Public Use
  Company Number: 200516228GDDC

PATIENT
  Age: 54 Year
  Sex: Female
  Weight: 80 kg

DRUGS (6)
  1. LANTUS [Suspect]
     Indication: DIABETES MELLITUS
     Route: 058
     Dates: start: 20050511
  2. DIAMICRON [Concomitant]
     Indication: DIABETES MELLITUS
     Route: 048
  3. GLUCOPHAGE [Concomitant]
     Indication: DIABETES MELLITUS
     Route: 048
     Dates: start: 19970101
  4. DISPRIN [Concomitant]
     Dosage: DOSE: 1/2
     Route: 048
  5. PHARMAPRESS [Concomitant]
     Indication: HYPERTENSION
     Route: 048
     Dates: start: 19960101, end: 20050701
  6. COVERSYL [Concomitant]
     Indication: HYPERTENSION
     Route: 048
     Dates: start: 20050701

REACTIONS (1)
  - GOUT [None]
